FAERS Safety Report 17355524 (Version 1)
Quarter: 2020Q1

REPORT INFORMATION
  Report Type: Spontaneous
  Country: US (occurrence: US)
  Receive Date: 20200131
  Receipt Date: 20200131
  Transmission Date: 20200409
  Serious: Yes (Hospitalization)
  Sender: FDA-Public Use
  Company Number: US-JNJFOC-20200136264

PATIENT
  Age: 66 Year
  Sex: Female
  Weight: 111 kg

DRUGS (1)
  1. SPRAVATO [Suspect]
     Active Substance: ESKETAMINE
     Indication: DEPRESSION
     Dates: start: 20191119

REACTIONS (3)
  - Abdominal symptom [Unknown]
  - Catheterisation cardiac [Unknown]
  - Product dose omission [Unknown]

NARRATIVE: CASE EVENT DATE: 20200120
